FAERS Safety Report 9300544 (Version 1)
Quarter: 2013Q2

REPORT INFORMATION
  Report Type: Spontaneous
  Country: US (occurrence: None)
  Receive Date: 20130520
  Receipt Date: 20130520
  Transmission Date: 20140414
  Serious: Yes (Death, Life-Threatening, Other)
  Sender: FDA-Public Use
  Company Number: None

PATIENT
  Age: 44 Year
  Sex: Male
  Weight: 79.38 kg

DRUGS (2)
  1. FLUOXETINE HCL 10MG PROZAC [Suspect]
     Indication: DEPRESSION
     Route: 048
     Dates: start: 20130107, end: 20130111
  2. FLUOXETINE HCL 10MG PROZAC [Suspect]
     Indication: BIPOLAR DISORDER
     Route: 048
     Dates: start: 20130107, end: 20130111

REACTIONS (6)
  - Suicidal ideation [None]
  - Swelling face [None]
  - Amnesia [None]
  - Pollakiuria [None]
  - Agitation [None]
  - Insomnia [None]
